FAERS Safety Report 26188780 (Version 1)
Quarter: 2025Q4

REPORT INFORMATION
  Report Type: Spontaneous
  Country: US (occurrence: US)
  Receive Date: 20251222
  Receipt Date: 20251222
  Transmission Date: 20260118
  Serious: No
  Sender: CELLTRION
  Company Number: US-CELLTRION INC.-2025US023406

PATIENT

DRUGS (3)
  1. TRUXIMA [Suspect]
     Active Substance: RITUXIMAB-ABBS
     Indication: Immune thrombocytopenia
     Dosage: 375 MG, 1/WEEK X4
     Route: 042
     Dates: start: 20250613
  2. TRUXIMA [Suspect]
     Active Substance: RITUXIMAB-ABBS
     Dosage: 375 MG, 1/WEEK X4
     Route: 042
     Dates: start: 20250625
  3. TRUXIMA [Suspect]
     Active Substance: RITUXIMAB-ABBS
     Dosage: 375 MG, 1/WEEK X4
     Route: 042
     Dates: start: 20250718

REACTIONS (2)
  - Intentional dose omission [Unknown]
  - Intentional product use issue [Unknown]
